FAERS Safety Report 15262755 (Version 2)
Quarter: 2018Q3

REPORT INFORMATION
  Report Type: Report from Study
  Country: BR (occurrence: BR)
  Receive Date: 20180809
  Receipt Date: 20180927
  Transmission Date: 20181010
  Serious: Yes (Other)
  Sender: FDA-Public Use
  Company Number: BR-ALEXION PHARMACEUTICALS INC.-A201808926

PATIENT
  Age: 42 Year
  Sex: Male

DRUGS (2)
  1. SOLIRIS [Suspect]
     Active Substance: ECULIZUMAB
     Dosage: 1200 MG, Q2W
     Route: 042
     Dates: start: 20160331
  2. SOLIRIS [Suspect]
     Active Substance: ECULIZUMAB
     Indication: PAROXYSMAL NOCTURNAL HAEMOGLOBINURIA
     Dosage: 600 MG, EVERY 7 DAYS
     Route: 042
     Dates: start: 20160112, end: 20160202

REACTIONS (11)
  - Incorrect dose administered [Unknown]
  - Urine viscosity increased [Not Recovered/Not Resolved]
  - Haemolysis [Not Recovered/Not Resolved]
  - Pulpitis dental [Unknown]
  - Haematuria [Not Recovered/Not Resolved]
  - Immunodeficiency [Unknown]
  - Asthenia [Unknown]
  - Haemoglobin decreased [Unknown]
  - Inappropriate schedule of drug administration [Unknown]
  - Chromaturia [Not Recovered/Not Resolved]
  - Headache [Recovered/Resolved]

NARRATIVE: CASE EVENT DATE: 20180731
